FAERS Safety Report 21859471 (Version 1)
Quarter: 2023Q1

REPORT INFORMATION
  Report Type: Spontaneous
  Country: US (occurrence: None)
  Receive Date: 20230112
  Receipt Date: 20230112
  Transmission Date: 20230417
  Serious: No
  Sender: FDA-Public Use
  Company Number: None

PATIENT
  Age: 57 Year
  Sex: Female
  Weight: 58.5 kg

DRUGS (6)
  1. TERBINAFINE [Suspect]
     Active Substance: TERBINAFINE
     Indication: Onychomycosis
     Dosage: FREQUENCY : DAILY;?
     Route: 048
     Dates: start: 20221222, end: 20221223
  2. MAXALT [Concomitant]
     Active Substance: RIZATRIPTAN BENZOATE
  3. MELOXICAM [Concomitant]
     Active Substance: MELOXICAM
  4. UBRELVY [Concomitant]
     Active Substance: UBROGEPANT
  5. FAMCICLOVIR [Concomitant]
     Active Substance: FAMCICLOVIR
  6. BIOTIN [Concomitant]
     Active Substance: BIOTIN

REACTIONS (4)
  - Product quality issue [None]
  - Nausea [None]
  - Dizziness [None]
  - Dyspepsia [None]
